FAERS Safety Report 13046246 (Version 4)
Quarter: 2017Q1

REPORT INFORMATION
  Report Type: Spontaneous
  Country: US (occurrence: US)
  Receive Date: 20161220
  Receipt Date: 20170210
  Transmission Date: 20170428
  Serious: No
  Sender: FDA-Public Use
  Company Number: US-GLAXOSMITHKLINE-US2016GSK186933

PATIENT
  Age: 54 Year
  Sex: Female

DRUGS (9)
  1. TANZEUM [Suspect]
     Active Substance: ALBIGLUTIDE
     Indication: BLOOD GLUCOSE ABNORMAL
  2. TANZEUM [Suspect]
     Active Substance: ALBIGLUTIDE
     Indication: TYPE 2 DIABETES MELLITUS
     Dosage: 50 MG, WE
     Dates: start: 201504
  3. METFORMIN [Concomitant]
     Active Substance: METFORMIN HYDROCHLORIDE
  4. OMEGA 3 FISH OIL [Concomitant]
     Active Substance: FISH OIL\OMEGA-3 FATTY ACIDS
  5. RISPERDAL [Concomitant]
     Active Substance: RISPERIDONE
  6. AMARYL [Concomitant]
     Active Substance: GLIMEPIRIDE
  7. TYLENOL [Concomitant]
     Active Substance: ACETAMINOPHEN
  8. FUROSEMIDE. [Concomitant]
     Active Substance: FUROSEMIDE
  9. DEPAKOTE [Concomitant]
     Active Substance: DIVALPROEX SODIUM

REACTIONS (11)
  - Blood glucose decreased [Recovered/Resolved]
  - Off label use [Unknown]
  - Incorrect dose administered [Unknown]
  - Intervertebral disc disorder [Not Recovered/Not Resolved]
  - Dizziness [Recovered/Resolved]
  - Lactose intolerance [Unknown]
  - Back pain [Not Recovered/Not Resolved]
  - Underdose [Unknown]
  - Diarrhoea [Not Recovered/Not Resolved]
  - Product quality issue [Unknown]
  - Device use error [Unknown]

NARRATIVE: CASE EVENT DATE: 201504
